FAERS Safety Report 7227324-7 (Version None)
Quarter: 2011Q1

REPORT INFORMATION
  Report Type: 
  Country: None (occurrence: None)
  Receive Date: 20110114
  Receipt Date: 20110106
  Transmission Date: 20110831
  Serious: Yes (Hospitalization)
  Sender: FDA-Public Use
  Company Number: R0012825A

PATIENT
  Sex: Male

DRUGS (4)
  1. BLINDED VACCINE [Suspect]
     Route: 030
     Dates: start: 20091014, end: 20091014
  2. ZANIDIP [Suspect]
     Indication: HYPERTENSION
     Dosage: 10MG PER DAY
     Route: 048
     Dates: start: 20080401, end: 20100815
  3. KREDEX [Suspect]
     Indication: HYPERTENSION
     Dosage: 50MG PER DAY
     Route: 048
     Dates: start: 20080401, end: 20100815
  4. PANDEMRIX [Concomitant]
     Route: 030
     Dates: start: 20091201, end: 20091201

REACTIONS (6)
  - HAEMATURIA [None]
  - RENAL FAILURE [None]
  - INJURY [None]
  - PYELONEPHRITIS [None]
  - URINARY TRACT INFECTION [None]
  - SEBORRHOEIC DERMATITIS [None]
